FAERS Safety Report 4654012-3 (Version None)
Quarter: 2005Q2

REPORT INFORMATION
  Report Type: 
  Country: None (occurrence: None)
  Receive Date: 20050504
  Receipt Date: 20050418
  Transmission Date: 20051028
  Serious: Yes (Death)
  Sender: FDA-Public Use
  Company Number: DSA_70635_2005

PATIENT
  Age: 10 Month
  Sex: Male

DRUGS (1)
  1. ROXICODONE [Suspect]
     Dosage: DF

REACTIONS (12)
  - CARDIAC ARREST [None]
  - CEPHALHAEMATOMA [None]
  - CONTUSION [None]
  - DRUG EXPOSURE VIA BREAST MILK [None]
  - DYSPNOEA [None]
  - NARCOTIC INTOXICATION [None]
  - PULMONARY ALVEOLAR HAEMORRHAGE [None]
  - PULMONARY CONGESTION [None]
  - PULMONARY OEDEMA [None]
  - SNORING [None]
  - SOMNOLENCE [None]
  - VICTIM OF HOMICIDE [None]
